FAERS Safety Report 7541359 (Version 3)
Quarter: 2012Q4

REPORT INFORMATION
  Report Type: 
  Country: US (occurrence: US)
  Receive Date: 20100815
  Receipt Date: 20121121
  Transmission Date: 20130627
  Serious: Yes (Death, Other)
  Sender: FDA-Public Use
  Company Number: US-BAYER-201030066NA

PATIENT
  Age: 68 Year
  Sex: Female
  Weight: 56 kg

DRUGS (23)
  1. TRASYLOL [Suspect]
     Indication: PRODUCT USED FOR UNKNOWN INDICATION
     Dosage: Test dose: None - 1 million units bypass pump prime
     Dates: start: 20031107, end: 20031107
  2. TRASYLOL [Suspect]
     Indication: PRODUCT USED FOR UNKNOWN INDICATION
     Dosage: Loading Dose - 200mL load followed by 25mL/hr continous infusion
  3. DILANTIN [Concomitant]
     Dosage: 300 mg, HS
  4. DIPYRIDAMOLE [Concomitant]
     Dosage: 50 mg, TID
  5. GLUCOSAMINE W/CHONDROITIN SULFATE [Concomitant]
     Dosage: One tablet twice a day
  6. LORAZEPAM [Concomitant]
     Dosage: 1 mg, TID
  7. VERAPAMIL [Concomitant]
     Dosage: 240 daily
  8. VITAMIN B12 [Concomitant]
     Dosage: One daily
  9. CALCIUM CHLORIDE [Concomitant]
     Dosage: UNK
     Dates: start: 20031107, end: 20031107
  10. HEPARIN [Concomitant]
     Dosage: UNK
     Dates: start: 20031107, end: 20031107
  11. LASIX [Concomitant]
     Dosage: 10mg
     Dates: start: 20031107, end: 20031107
  12. LEVOPHED [Concomitant]
     Dosage: UNK
     Dates: start: 20031107
  13. LIDOCAINE [Concomitant]
     Dosage: 100mg
     Dates: start: 20031107, end: 20031107
  14. MANNITOL [Concomitant]
     Dosage: 37.5 grams
     Dates: start: 20031107, end: 20031107
  15. METOPROLOL [Concomitant]
     Dosage: UNK
     Dates: start: 20031107, end: 20031107
  16. MORPHINE [Concomitant]
     Dosage: UNK
     Dates: start: 20031107, end: 20031107
  17. NEOSYNEPHRINE [Concomitant]
     Dosage: 5mg
     Dates: start: 20031107, end: 20031107
  18. NIPRIDE [Concomitant]
     Dosage: UNK
     Dates: start: 20031107, end: 20031107
  19. PRIMACOR [Concomitant]
     Dosage: UNK
     Dates: start: 20031107
  20. SODIUM BICARBONATE [Concomitant]
     Dosage: UNK
     Dates: start: 20031107, end: 20031107
  21. VERSED [Concomitant]
     Dosage: UNK
     Dates: start: 20031107, end: 20031107
  22. CELL SAVER [Concomitant]
     Dosage: UNK
     Dates: start: 20031107
  23. PACKED RED BLOOD CELLS [Concomitant]
     Dosage: UNK

REACTIONS (13)
  - Death [Fatal]
  - Renal injury [Unknown]
  - Renal failure [Unknown]
  - Multi-organ failure [Unknown]
  - Anxiety [Unknown]
  - Fear [Unknown]
  - Pain [Unknown]
  - Depression [Unknown]
  - Injury [Unknown]
  - Anxiety [Unknown]
  - Emotional distress [Unknown]
  - Disability [Unknown]
  - Anhedonia [Unknown]
